FAERS Safety Report 18365670 (Version 1)
Quarter: 2020Q4

REPORT INFORMATION
  Report Type: Spontaneous
  Country: JP (occurrence: JP)
  Receive Date: 20201009
  Receipt Date: 20201009
  Transmission Date: 20210114
  Serious: Yes (Other)
  Sender: FDA-Public Use
  Company Number: JP-STRIDES ARCOLAB LIMITED-2020SP011929

PATIENT
  Age: 77 Year
  Sex: Female

DRUGS (4)
  1. PREDNISOLONE. [Suspect]
     Active Substance: PREDNISOLONE
     Dosage: TAPERING
     Route: 048
  2. PREDNISOLONE. [Suspect]
     Active Substance: PREDNISOLONE
     Dosage: 7 MILLIGRAM PER DAY
     Route: 048
  3. PREDNISOLONE. [Suspect]
     Active Substance: PREDNISOLONE
     Indication: ANTI-NEUTROPHIL CYTOPLASMIC ANTIBODY POSITIVE VASCULITIS
     Dosage: 30 MILLIGRAM
     Route: 042
  4. ALENDRONATE SODIUM HYDRATE [Suspect]
     Active Substance: ALENDRONATE SODIUM
     Indication: PROPHYLAXIS
     Dosage: 35 MILLIGRAM ONCE WEEKLY
     Route: 048

REACTIONS (9)
  - Gingival pain [Recovered/Resolved]
  - Tooth loss [Unknown]
  - Osteomyelitis [Recovered/Resolved]
  - Fistula [Recovered/Resolved]
  - Gingival swelling [Recovered/Resolved]
  - Trismus [Recovered/Resolved]
  - Osteonecrosis of jaw [Recovered/Resolved]
  - Dental caries [Recovered/Resolved]
  - Abscess [Recovered/Resolved]
